FAERS Safety Report 13530380 (Version 1)
Quarter: 2017Q2

REPORT INFORMATION
  Report Type: Spontaneous
  Country: RS (occurrence: RS)
  Receive Date: 20170509
  Receipt Date: 20170509
  Transmission Date: 20170830
  Serious: Yes (Hospitalization, Other)
  Sender: FDA-Public Use
  Company Number: RS-MYLANLABS-2017M1027833

PATIENT

DRUGS (4)
  1. HALOPERIDOL. [Concomitant]
     Active Substance: HALOPERIDOL
     Indication: PRODUCT USED FOR UNKNOWN INDICATION
  2. DIAZEPAM. [Concomitant]
     Active Substance: DIAZEPAM
     Indication: PRODUCT USED FOR UNKNOWN INDICATION
     Dosage: UNK
  3. BIPERIDEN [Concomitant]
     Active Substance: BIPERIDEN
     Indication: PRODUCT USED FOR UNKNOWN INDICATION
  4. CLOZAPINE. [Suspect]
     Active Substance: CLOZAPINE
     Indication: PRODUCT USED FOR UNKNOWN INDICATION

REACTIONS (16)
  - Antipsychotic drug level decreased [Unknown]
  - Abdominal distension [Recovering/Resolving]
  - Haemoglobin decreased [Recovering/Resolving]
  - Haematocrit decreased [Unknown]
  - Sinus tachycardia [Not Recovered/Not Resolved]
  - Pupillary disorder [Recovered/Resolved]
  - Haematemesis [Recovering/Resolving]
  - Overdose [Recovering/Resolving]
  - Intestinal dilatation [Recovering/Resolving]
  - Colonic pseudo-obstruction [Recovering/Resolving]
  - Gastric dilatation [Recovering/Resolving]
  - Nausea [Recovering/Resolving]
  - Loss of consciousness [Recovered/Resolved]
  - Salivary hypersecretion [Recovered/Resolved]
  - Gastrointestinal sounds abnormal [Recovering/Resolving]
  - White blood cell count increased [Not Recovered/Not Resolved]
